FAERS Safety Report 7727743-6 (Version None)
Quarter: 2011Q3

REPORT INFORMATION
  Report Type: 
  Country: None (occurrence: None)
  Receive Date: 20110902
  Receipt Date: 20110829
  Transmission Date: 20111222
  Serious: Yes (Hospitalization, Other)
  Sender: FDA-Public Use
  Company Number: US-MERCK-1108USA03511

PATIENT
  Age: 83 Year
  Sex: Female

DRUGS (13)
  1. DORYX [Concomitant]
     Route: 065
  2. OMEGA-3 MARINE TRIGLYCERIDES [Concomitant]
     Route: 065
  3. LEVOTHYROXINE SODIUM [Concomitant]
     Route: 065
  4. VITAMINS (UNSPECIFIED) [Concomitant]
     Route: 065
  5. PLAVIX [Concomitant]
     Route: 065
     Dates: end: 20100101
  6. FOSAMAX PLUS D [Suspect]
     Route: 048
     Dates: start: 20101021
  7. HYDROXYZINE [Concomitant]
     Route: 065
  8. COZAAR [Concomitant]
     Route: 048
  9. METOPROLOL [Concomitant]
     Route: 065
  10. FOSAMAX PLUS D [Suspect]
     Indication: OSTEOPOROSIS
     Route: 048
     Dates: start: 20070401, end: 20100927
  11. ATROPINE SULFATE AND DIPHENOXYLATE HYDROCHLORIDE [Concomitant]
     Route: 065
  12. SIMVASTATIN [Concomitant]
     Route: 065
  13. ASPIRIN [Concomitant]
     Route: 065
     Dates: end: 20100101

REACTIONS (8)
  - UPPER LIMB FRACTURE [None]
  - HAEMORRHAGE [None]
  - LUNG NEOPLASM MALIGNANT [None]
  - MYOCARDIAL INFARCTION [None]
  - POLYARTHRITIS [None]
  - SPINAL OSTEOARTHRITIS [None]
  - NECK MASS [None]
  - GROIN PAIN [None]
